FAERS Safety Report 19875320 (Version 2)
Quarter: 2021Q4

REPORT INFORMATION
  Report Type: Spontaneous
  Country: GB (occurrence: GB)
  Receive Date: 20210924
  Receipt Date: 20211011
  Transmission Date: 20220303
  Serious: Yes (Disabling, Other)
  Sender: FDA-Public Use
  Company Number: None

PATIENT
  Age: 34 Year
  Sex: Female
  Weight: 52 kg

DRUGS (4)
  1. ELOCON [Suspect]
     Active Substance: MOMETASONE FUROATE
     Indication: Eczema
     Dosage: UNK
     Route: 061
     Dates: start: 20210411, end: 20210906
  2. EUMOVATE [Suspect]
     Active Substance: CLOBETASONE BUTYRATE
     Indication: Eczema
     Dosage: UNK
     Route: 061
     Dates: start: 20210411, end: 20210906
  3. HYDROXYZINE PAMOATE [Concomitant]
     Active Substance: HYDROXYZINE PAMOATE
     Dosage: UNK
  4. LORATADINE [Concomitant]
     Active Substance: LORATADINE
     Dosage: UNK

REACTIONS (6)
  - Swelling [Not Recovered/Not Resolved]
  - Skin weeping [Not Recovered/Not Resolved]
  - Chills [Not Recovered/Not Resolved]
  - Steroid withdrawal syndrome [Not Recovered/Not Resolved]
  - Neuralgia [Not Recovered/Not Resolved]
  - Erythema [Not Recovered/Not Resolved]
